FAERS Safety Report 6196784-5 (Version None)
Quarter: 2009Q2

REPORT INFORMATION
  Report Type: 
  Country: None (occurrence: None)
  Receive Date: 20090520
  Receipt Date: 20090512
  Transmission Date: 20091009
  Serious: Yes (Hospitalization)
  Sender: FDA-Public Use
  Company Number: PHHY2009KR14566

PATIENT
  Sex: Female
  Weight: 159.3 kg

DRUGS (2)
  1. CERTICAN [Suspect]
     Indication: RENAL TRANSPLANT
     Dosage: 0.5 MG, BID
     Route: 048
     Dates: start: 20090223
  2. SANDIMMUNE [Suspect]
     Indication: RENAL TRANSPLANT

REACTIONS (5)
  - DYSPNOEA [None]
  - EJECTION FRACTION DECREASED [None]
  - LEFT VENTRICULAR DYSFUNCTION [None]
  - NEPHROPATHY TOXIC [None]
  - THERAPEUTIC AGENT TOXICITY [None]
